FAERS Safety Report 4321100-0 (Version None)
Quarter: 2004Q1

REPORT INFORMATION
  Report Type: 
  Country: None (occurrence: None)
  Receive Date: 20040315
  Receipt Date: 20031118
  Transmission Date: 20041129
  Serious: Yes (Other)
  Sender: FDA-Public Use
  Company Number: PHEH2003US10483

PATIENT
  Age: 46 Year
  Sex: Male
  Weight: 81.6 kg

DRUGS (4)
  1. TRILEPTAL [Suspect]
     Dosage: 300 MG, BID, ORAL
     Route: 048
     Dates: start: 20030901
  2. INTERFERON (INTERFERON) [Concomitant]
  3. ZOLOFT [Concomitant]
  4. GEODON [Concomitant]

REACTIONS (2)
  - CONDITION AGGRAVATED [None]
  - LEUKOPENIA [None]
